FAERS Safety Report 25240864 (Version 1)
Quarter: 2025Q2

REPORT INFORMATION
  Report Type: Report from Study
  Country: JP (occurrence: JP)
  Receive Date: 20250425
  Receipt Date: 20250425
  Transmission Date: 20250717
  Serious: Yes (Other)
  Sender: UCB
  Company Number: JP-UCBJ-CD202404945UCBPHAPROD

PATIENT
  Age: 55 Year
  Sex: Female
  Weight: 61.7 kg

DRUGS (17)
  1. ROZANOLIXIZUMAB [Suspect]
     Active Substance: ROZANOLIXIZUMAB
     Indication: Myasthenia gravis
     Route: 058
     Dates: start: 20240207, end: 20240221
  2. PREDNISOLONE [Suspect]
     Active Substance: PREDNISOLONE
     Indication: Myasthenia gravis
     Dosage: 6 MILLIGRAM, ONCE DAILY (QD)
     Route: 048
  3. PREDNISOLONE [Suspect]
     Active Substance: PREDNISOLONE
     Dosage: 20 MILLIGRAM, ONCE DAILY (QD)
     Route: 048
  4. PREDNISOLONE [Suspect]
     Active Substance: PREDNISOLONE
     Dosage: 9 MILLIGRAM, ONCE DAILY (QD)
     Route: 048
     Dates: start: 20240213
  5. PREDNISOLONE [Suspect]
     Active Substance: PREDNISOLONE
     Dosage: 29 MILLIGRAM, ONCE DAILY (QD)
     Route: 048
     Dates: start: 20240214, end: 20240220
  6. PREDNISOLONE [Suspect]
     Active Substance: PREDNISOLONE
     Dosage: 34 MILLIGRAM, ONCE DAILY (QD)
     Route: 048
     Dates: start: 20240221, end: 20240227
  7. PREDNISOLONE [Suspect]
     Active Substance: PREDNISOLONE
     Dosage: 29 MILLIGRAM, ONCE DAILY (QD)
     Route: 048
     Dates: start: 20240228, end: 20240430
  8. PREDNISOLONE [Suspect]
     Active Substance: PREDNISOLONE
     Dosage: 11 MILLIGRAM, ONCE DAILY (QD)
     Route: 048
     Dates: start: 20240501, end: 20240503
  9. PREDNISOLONE [Suspect]
     Active Substance: PREDNISOLONE
     Dosage: 6 MILLIGRAM, ONCE DAILY (QD)
     Route: 048
     Dates: start: 20240504, end: 20240702
  10. PREDNISOLONE [Suspect]
     Active Substance: PREDNISOLONE
     Dosage: 5 MILLIGRAM, ONCE DAILY (QD)
     Route: 048
     Dates: start: 20240703, end: 20240910
  11. PREDNISOLONE [Suspect]
     Active Substance: PREDNISOLONE
     Dosage: 4 MILLIGRAM, ONCE DAILY (QD)
     Route: 048
     Dates: start: 20240911, end: 20241008
  12. PREDNISOLONE [Suspect]
     Active Substance: PREDNISOLONE
     Dosage: 3 MILLIGRAM, ONCE DAILY (QD)
     Route: 048
     Dates: start: 20241009, end: 20241105
  13. PREDNISOLONE [Suspect]
     Active Substance: PREDNISOLONE
     Dosage: 2 MILLIGRAM, ONCE DAILY (QD)
     Route: 048
     Dates: start: 20241106, end: 20241224
  14. PREDNISOLONE [Suspect]
     Active Substance: PREDNISOLONE
     Dosage: 1 MILLIGRAM, ONCE DAILY (QD)
     Route: 048
     Dates: start: 20241225
  15. TACROLIMUS [Suspect]
     Active Substance: TACROLIMUS
     Indication: Myasthenia gravis
     Dosage: 3 MILLIGRAM, ONCE DAILY (QD)
     Route: 048
  16. MESTINON [Concomitant]
     Active Substance: PYRIDOSTIGMINE BROMIDE
     Indication: Myasthenia gravis
     Dosage: 180 MILLIGRAM, ONCE DAILY (QD)
     Route: 048
     Dates: end: 20241105
  17. EFGARTIGIMOD ALFA [Concomitant]
     Active Substance: EFGARTIGIMOD ALFA
     Indication: Myasthenia gravis
     Dosage: 1008 MILLIGRAM, WEEKLY (QW)
     Route: 042
     Dates: start: 20240612

REACTIONS (2)
  - Tinea infection [Recovering/Resolving]
  - Myasthenia gravis [Recovered/Resolved]

NARRATIVE: CASE EVENT DATE: 20240214
